FAERS Safety Report 7912473-8 (Version None)
Quarter: 2011Q4

REPORT INFORMATION
  Report Type: 
  Country: None (occurrence: None)
  Receive Date: 20111114
  Receipt Date: 20111109
  Transmission Date: 20120403
  Serious: No
  Sender: FDA-Public Use
  Company Number: US-PFIZER INC-2011274997

PATIENT
  Sex: Female
  Weight: 81.6 kg

DRUGS (2)
  1. EFFEXOR XR [Suspect]
     Indication: HEADACHE
     Dosage: 75 MG, 1X/DAY
     Route: 048
     Dates: start: 20000101
  2. EFFEXOR XR [Suspect]
     Dosage: 37.5 MG, 1X/DAY
     Route: 048
     Dates: start: 20111001

REACTIONS (1)
  - DIZZINESS [None]
